FAERS Safety Report 11964629 (Version 1)
Quarter: 2016Q1

REPORT INFORMATION
  Report Type: Spontaneous
  Country: US (occurrence: None)
  Receive Date: 20160125
  Receipt Date: 20160125
  Transmission Date: 20160526
  Serious: No
  Sender: FDA-Public Use
  Company Number: None

PATIENT
  Age: 59 Year
  Sex: Female
  Weight: 56.25 kg

DRUGS (6)
  1. SUPREP BOWEL PREP [Suspect]
     Active Substance: MAGNESIUM SULFATE\POTASSIUM SULFATE\SODIUM SULFATE
     Indication: COLONOSCOPY
     Dosage: TWO 6 OZ BOTTLES, ONCE DAILY, TAKEN BY MOUTH
     Dates: start: 20160119, end: 20160120
  2. FISH OIL [Concomitant]
     Active Substance: FISH OIL
  3. CUR CUMIN [Concomitant]
  4. BABY ASPIRIN [Concomitant]
     Active Substance: ASPIRIN
  5. GLUCOSAMINE CHONDROITIN [Concomitant]
     Active Substance: CHONDROITIN SULFATE (BOVINE)\GLUCOSAMINE HYDROCHLORIDE
  6. RED YEAST RICE [Concomitant]
     Active Substance: DIETARY SUPPLEMENT

REACTIONS (5)
  - Product formulation issue [None]
  - Abdominal distension [None]
  - Nausea [None]
  - Abdominal pain [None]
  - Vomiting [None]

NARRATIVE: CASE EVENT DATE: 20160120
